FAERS Safety Report 12439466 (Version 2)
Quarter: 2016Q2

REPORT INFORMATION
  Report Type: Spontaneous
  Country: PE (occurrence: PE)
  Receive Date: 20160606
  Receipt Date: 20160620
  Transmission Date: 20160815
  Serious: Yes (Other)
  Sender: FDA-Public Use
  Company Number: PE-PFIZER INC-2016281614

PATIENT
  Age: 82 Year
  Sex: Female

DRUGS (1)
  1. LYRICA [Suspect]
     Active Substance: PREGABALIN
     Dosage: 225 MG (75 MG AND 150 MG), DAILY

REACTIONS (2)
  - Deafness [Unknown]
  - Malaise [Unknown]
